FAERS Safety Report 23772700 (Version 1)
Quarter: 2024Q2

REPORT INFORMATION
  Report Type: Spontaneous
  Country: US (occurrence: US)
  Receive Date: 20240423
  Receipt Date: 20240423
  Transmission Date: 20240715
  Serious: Yes (Disabling, Other)
  Sender: FDA-Public Use
  Company Number: US-REGENERON PHARMACEUTICALS, INC.-2024-061228

PATIENT

DRUGS (1)
  1. EYLEA [Suspect]
     Active Substance: AFLIBERCEPT
     Indication: Diabetic retinopathy
     Dosage: UNK, FORMULATION: UNKNOWN

REACTIONS (14)
  - Blindness unilateral [Unknown]
  - Hallucination, visual [Unknown]
  - Exophthalmos [Unknown]
  - Photopsia [Unknown]
  - Visual impairment [Unknown]
  - Night blindness [Unknown]
  - Metamorphopsia [Unknown]
  - Eye haemorrhage [Recovered/Resolved]
  - Visual impairment [Unknown]
  - Visual field defect [Unknown]
  - Photophobia [Unknown]
  - Headache [Unknown]
  - Asthenopia [Unknown]
  - Drug ineffective [Unknown]
